FAERS Safety Report 4763772-2 (Version None)
Quarter: 2005Q3

REPORT INFORMATION
  Report Type: 
  Country: None (occurrence: None)
  Receive Date: 20050908
  Receipt Date: 20050901
  Transmission Date: 20060218
  Serious: Yes (Other)
  Sender: FDA-Public Use
  Company Number: US-BRISTOL-MYERS SQUIBB COMPANY-13097019

PATIENT
  Age: 67 Year
  Sex: Male
  Weight: 58 kg

DRUGS (10)
  1. CETUXIMAB [Suspect]
     Indication: SQUAMOUS CELL CARCINOMA
     Dosage: START DATE COURSE 1: 21-JUL-05. TOTAL DOSE THIS COURSE 250 MG. DOSE HELD ON 31-AUG-05 (7 DAY DELAY).
     Dates: start: 20050824, end: 20050824
  2. CISPLATIN [Suspect]
     Indication: SQUAMOUS CELL CARCINOMA
     Dosage: TOTAL DOSE THIS COURSE: 30 MG. 31-AUG-05 DOSE HELD (7 DAY DELAY).
     Dates: start: 20050824, end: 20050824
  3. RADIATION THERAPY [Suspect]
     Indication: SQUAMOUS CELL CARCINOMA
     Dosage: ALSO GIVEN 06-SEP-05. RECEIVED 3 DAY BREAK FROM RADIATION.
     Dates: start: 20050830, end: 20050830
  4. ACETAMINOPHEN [Concomitant]
  5. AMITRIPTYLINE HCL [Concomitant]
  6. COMBIVENT [Concomitant]
  7. FLOVENT [Concomitant]
  8. LORAZEPAM [Concomitant]
  9. OXYCODONE HCL [Concomitant]
  10. VITAMIN B-12 [Concomitant]

REACTIONS (2)
  - DERMATITIS [None]
  - RADIATION SKIN INJURY [None]
